FAERS Safety Report 7479181-1 (Version None)
Quarter: 2011Q2

REPORT INFORMATION
  Report Type: 
  Country: None (occurrence: None)
  Receive Date: 20110513
  Receipt Date: 20110506
  Transmission Date: 20111010
  Serious: Yes (Death, Hospitalization)
  Sender: FDA-Public Use
  Company Number: A0771615A

PATIENT
  Age: 51 Year
  Sex: Male
  Weight: 112.3 kg

DRUGS (9)
  1. AVANDAMET [Suspect]
     Indication: DIABETES MELLITUS
     Route: 048
     Dates: end: 20060101
  2. AVANDIA [Suspect]
     Indication: DIABETES MELLITUS
     Dosage: 8MG PER DAY
     Route: 048
     Dates: start: 20061201, end: 20070201
  3. GLYBURIDE [Concomitant]
  4. LIPITOR [Concomitant]
  5. LISINOPRIL [Concomitant]
  6. TRICOR [Concomitant]
  7. COZAAR [Concomitant]
  8. DIAZEPAM [Concomitant]
  9. TOPROL-XL [Concomitant]

REACTIONS (5)
  - CARDIOGENIC SHOCK [None]
  - MYOCARDIAL INFARCTION [None]
  - ARTERIOSCLEROSIS [None]
  - CARDIAC FAILURE [None]
  - ISCHAEMIC CARDIOMYOPATHY [None]
